FAERS Safety Report 6054768-1 (Version None)
Quarter: 2009Q1

REPORT INFORMATION
  Report Type: 
  Country: None (occurrence: None)
  Receive Date: 20090128
  Receipt Date: 20080822
  Transmission Date: 20090719
  Serious: No
  Sender: FDA-Public Use
  Company Number: US-BAYER-200813498BCC

PATIENT
  Age: 48 Year
  Sex: Female
  Weight: 54 kg

DRUGS (3)
  1. ALEVE (CAPLET) [Suspect]
     Indication: TOOTHACHE
     Dosage: UNIT DOSE: 220 MG
     Route: 048
     Dates: start: 20080819, end: 20080819
  2. ALEVE (CAPLET) [Suspect]
     Route: 048
     Dates: start: 20080819, end: 20080821
  3. PENICILLIN [Concomitant]

REACTIONS (4)
  - CHEST DISCOMFORT [None]
  - DYSPNOEA [None]
  - GENITAL HAEMORRHAGE [None]
  - HYPERHIDROSIS [None]
